FAERS Safety Report 20862410 (Version 2)
Quarter: 2022Q3

REPORT INFORMATION
  Report Type: Spontaneous
  Country: US (occurrence: US)
  Receive Date: 20220523
  Receipt Date: 20220728
  Transmission Date: 20221027
  Serious: Yes (Other)
  Sender: FDA-Public Use
  Company Number: US-BRISTOL-MYERS SQUIBB COMPANY-2022-045080

PATIENT
  Age: 73 Year
  Sex: Male
  Weight: 91.6 kg

DRUGS (2)
  1. REVLIMID [Suspect]
     Active Substance: LENALIDOMIDE
     Indication: Plasma cell myeloma
     Dosage: DAY 1-28 Q 28 DAYS
     Route: 048
     Dates: start: 20210420, end: 20220512
  2. REVLIMID [Suspect]
     Active Substance: LENALIDOMIDE
     Dosage: BATCH: A3610A; EXP: 31-MAR-2024
     Route: 048
     Dates: start: 20220520, end: 20220719

REACTIONS (13)
  - Diarrhoea [Not Recovered/Not Resolved]
  - Laboratory test abnormal [Unknown]
  - Malaise [Unknown]
  - Dyspnoea [Unknown]
  - Hyperhidrosis [Unknown]
  - Chills [Unknown]
  - Weight decreased [Unknown]
  - White blood cell count decreased [Unknown]
  - Red blood cell count decreased [Unknown]
  - Product dose omission issue [Unknown]
  - Fatigue [Not Recovered/Not Resolved]
  - Decreased appetite [Not Recovered/Not Resolved]
  - Neutropenia [Not Recovered/Not Resolved]
